FAERS Safety Report 19950194 (Version 1)
Quarter: 2021Q4

REPORT INFORMATION
  Report Type: Spontaneous
  Country: US (occurrence: US)
  Receive Date: 20211013
  Receipt Date: 20211013
  Transmission Date: 20220303
  Serious: Yes (Hospitalization)
  Sender: FDA-Public Use
  Company Number: US-ROCHE-2931559

PATIENT
  Age: 56 Year
  Sex: Female
  Weight: 111.6 kg

DRUGS (33)
  1. XOLAIR [Suspect]
     Active Substance: OMALIZUMAB
     Indication: Asthma
     Route: 058
     Dates: start: 202001
  2. ALBUTEROL [Concomitant]
     Active Substance: ALBUTEROL
     Indication: Wheezing
     Dosage: 2.5MG/3ML (0.083%) NEBULIZER SOLUTION TAKE 3 MKS (2.5MG TOTAL) BY NEBULIZATION EVERY 6 HOURS AS NEED
  3. ALBUTEROL [Concomitant]
     Active Substance: ALBUTEROL
     Indication: Dyspnoea
  4. ALBUTEROL SULFATE [Concomitant]
     Active Substance: ALBUTEROL SULFATE
     Indication: Wheezing
     Dosage: INHALER 90MCG/ACTUATION INHALE 2 PUFFS INTO LUNGS EVERY 6 HOURS AS NEEDED
  5. ALBUTEROL SULFATE [Concomitant]
     Active Substance: ALBUTEROL SULFATE
     Indication: Dyspnoea
  6. ALPRAZOLAM [Concomitant]
     Active Substance: ALPRAZOLAM
     Dosage: 1 MG BY MOUTH NIGHTLY
     Route: 048
  7. AMLODIPINE [Concomitant]
     Active Substance: AMLODIPINE BESYLATE
     Route: 048
  8. ASCORBIC ACID [Concomitant]
     Active Substance: ASCORBIC ACID
     Route: 048
  9. BIOTIN [Concomitant]
     Active Substance: BIOTIN
     Dosage: 10000 MCG CAP
     Route: 048
  10. VITAMIN B COMPLEX [Concomitant]
     Active Substance: CYANOCOBALAMIN\DEXPANTHENOL\NIACINAMIDE\PYRIDOXINE HYDROCHLORIDE\RIBOFLAVIN 5^-PHOSPHATE SODIUM\THIA
     Route: 048
  11. CALCIUM\CHOLECALCIFEROL [Concomitant]
     Active Substance: CALCIUM\CHOLECALCIFEROL
     Dosage: TAKE 6 TABLETS BY MOUTH NIGHTLY
     Route: 048
  12. CHOLECALCIFEROL [Concomitant]
     Active Substance: CHOLECALCIFEROL
     Dosage: TAKE 10000 UNITS BY MOUTH NIGHTLY
     Route: 048
  13. CYCLOBENZAPRINE [Concomitant]
     Active Substance: CYCLOBENZAPRINE
     Indication: Muscle spasms
     Route: 048
  14. DICLOFENAC SODIUM [Concomitant]
     Active Substance: DICLOFENAC SODIUM
     Dosage: 1% TOPICAL GEL
  15. EPINEPHRINE [Concomitant]
     Active Substance: EPINEPHRINE
     Dosage: 2 PAK 0.3 MG/0.3 ML INJECTION
  16. FAMOTIDINE [Concomitant]
     Active Substance: FAMOTIDINE
     Route: 048
  17. FLUOXETINE [Concomitant]
     Active Substance: FLUOXETINE HYDROCHLORIDE
     Route: 048
  18. FLUTICASONE PROPIONATE\SALMETEROL XINAFOATE [Concomitant]
     Active Substance: FLUTICASONE PROPIONATE\SALMETEROL XINAFOATE
     Dosage: 500- 50 MCG DOSE INHALE 1 PUFF INTO LUNGS
  19. GABAPENTIN [Concomitant]
     Active Substance: GABAPENTIN
     Route: 048
  20. HYDROCORTISONE [Concomitant]
     Active Substance: HYDROCORTISONE
     Dosage: 15 MG IN ARM, 5 MG IN AFTERNOON, 5 MG IN PM
  21. HYDROXYCHLOROQUINE [Concomitant]
     Active Substance: HYDROXYCHLOROQUINE
     Route: 048
  22. LEVOCETRIZINE HYDROCHLORIDE [Concomitant]
     Dosage: 5 MG BY MOUTH NIGHTLY
     Route: 048
  23. LEVOFLOXACIN [Concomitant]
     Active Substance: LEVOFLOXACIN
     Indication: Pneumonia
     Route: 048
  24. LEVOTHYROXINE [Concomitant]
     Active Substance: LEVOTHYROXINE
     Dosage: 125 MCG BY MOUTH DAILY
     Route: 048
  25. MONTELUKAST [Concomitant]
     Active Substance: MONTELUKAST SODIUM
     Dosage: 1 TAB BY MOUTH NIGHTLY
     Route: 048
  26. MORPHINE [Concomitant]
     Active Substance: MORPHINE
     Indication: Pain
     Route: 048
  27. OLOPATADINE [Concomitant]
     Active Substance: OLOPATADINE
  28. METHYLPREDNISOLONE [Concomitant]
     Active Substance: METHYLPREDNISOLONE
     Route: 048
  29. GABAPENTIN [Concomitant]
     Active Substance: GABAPENTIN
     Route: 048
  30. BELIMUMAB [Concomitant]
     Active Substance: BELIMUMAB
     Indication: Systemic lupus erythematosus
  31. VALACYCLOVIR [Concomitant]
     Active Substance: VALACYCLOVIR HYDROCHLORIDE
     Route: 048
  32. PROCHLORPERAZINE [Concomitant]
     Active Substance: PROCHLORPERAZINE
     Route: 048
  33. POTASSIUM CHLORIDE [Concomitant]
     Active Substance: POTASSIUM CHLORIDE
     Dosage: 1 TAB 10 MEQ BY MOUTH
     Route: 048

REACTIONS (9)
  - Pneumonia [Not Recovered/Not Resolved]
  - Sepsis [Unknown]
  - Back pain [Unknown]
  - Nausea [Unknown]
  - Pyrexia [Unknown]
  - Chills [Unknown]
  - Chest discomfort [Unknown]
  - Cough [Unknown]
  - Fatigue [Not Recovered/Not Resolved]

NARRATIVE: CASE EVENT DATE: 20210917
